FAERS Safety Report 25871328 (Version 3)
Quarter: 2025Q4

REPORT INFORMATION
  Report Type: Report from Study
  Country: US (occurrence: US)
  Receive Date: 20251001
  Receipt Date: 20251105
  Transmission Date: 20260118
  Serious: Yes (Other)
  Sender: ABBVIE
  Company Number: US-ABBVIE-6482745

PATIENT
  Age: 72 Year
  Sex: Male

DRUGS (7)
  1. VENCLEXTA [Suspect]
     Active Substance: VENETOCLAX
     Indication: Chronic lymphocytic leukaemia
     Dosage: LAST ADMIN: 2025
     Route: 048
     Dates: start: 20250908
  2. ZOFRAN [Concomitant]
     Active Substance: ONDANSETRON HYDROCHLORIDE
     Indication: Product used for unknown indication
  3. SYMBICORT [Concomitant]
     Active Substance: BUDESONIDE\FORMOTEROL FUMARATE DIHYDRATE
     Indication: Product used for unknown indication
     Dosage: INHALATION AEROSOL
  4. LEVOTHYROXINE SODIUM [Concomitant]
     Active Substance: LEVOTHYROXINE SODIUM
     Indication: Product used for unknown indication
  5. CALQUENCE [Concomitant]
     Active Substance: ACALABRUTINIB
     Indication: Product used for unknown indication
     Dates: end: 202510
  6. LOSARTAN [Concomitant]
     Active Substance: LOSARTAN
     Indication: Product used for unknown indication
  7. ALLOPURINOL [Concomitant]
     Active Substance: ALLOPURINOL
     Indication: Product used for unknown indication

REACTIONS (3)
  - Haemoglobin decreased [Not Recovered/Not Resolved]
  - Nocturia [Not Recovered/Not Resolved]
  - Full blood count decreased [Not Recovered/Not Resolved]

NARRATIVE: CASE EVENT DATE: 20250101
